FAERS Safety Report 8818267 (Version 3)
Quarter: 2012Q4

REPORT INFORMATION
  Report Type: 
  Country: US (occurrence: US)
  Receive Date: 20121001
  Receipt Date: 20121126
  Transmission Date: 20130627
  Serious: No
  Sender: FDA-Public Use
  Company Number: US-GLAXOSMITHKLINE-A0990102A

PATIENT
  Age: 39 Year
  Sex: Female
  Weight: 80 kg

DRUGS (18)
  1. ADVAIR [Concomitant]
  2. NASONEX [Concomitant]
  3. ALLEGRA [Concomitant]
  4. LEVOXYL [Concomitant]
  5. CYMBALTA [Concomitant]
     Dosage: 200MG Twice per day
  6. FERROUS SULFATE [Concomitant]
  7. GABAPENTIN [Concomitant]
     Dosage: 400MG At night
  8. VITAMIN D [Concomitant]
  9. ASPIRIN [Concomitant]
  10. SYMBICORT [Concomitant]
  11. DEPLIN [Concomitant]
  12. NUVIGIL [Concomitant]
  13. SINGULAIR [Concomitant]
  14. PLAQUENIL [Concomitant]
  15. CHLOR TRIMETON [Concomitant]
  16. AUGMENTIN [Concomitant]
  17. CLARITHROMYCIN [Concomitant]
  18. BENLYSTA [Suspect]
     Indication: SYSTEMIC LUPUS ERYTHEMATOSUS
     Dosage: 567MG As required
     Route: 042
     Dates: start: 20110814

REACTIONS (2)
  - Eye infection [Recovered/Resolved]
  - Therapeutic response unexpected [Unknown]
